FAERS Safety Report 8819945 (Version 4)
Quarter: 2013Q3

REPORT INFORMATION
  Report Type: Report from Study
  Country: US (occurrence: US)
  Receive Date: 20121001
  Receipt Date: 20130924
  Transmission Date: 20140515
  Serious: Yes (Death, Hospitalization, Other)
  Sender: FDA-Public Use
  Company Number: US-ALEXION PHARMACEUTICALS INC.-A201201461

PATIENT
  Sex: Male

DRUGS (9)
  1. SOLIRIS [Suspect]
     Indication: HAEMOLYTIC URAEMIC SYNDROME
     Dosage: 300 MG, UNK
     Route: 042
     Dates: start: 20120404, end: 20120712
  2. ROXANOL [Concomitant]
  3. ATIVAN [Concomitant]
  4. DIASTAT [Concomitant]
  5. KEPPRA [Concomitant]
     Dosage: 250 MG, BID
     Route: 048
  6. CLONIDINE [Concomitant]
     Dosage: 0.2 MG, QD
  7. ZANTAC [Concomitant]
     Dosage: 30 MG, QD
     Route: 048
  8. DECADRON [Concomitant]
     Dosage: 2 MG, TID
     Route: 048
  9. PENICILLIN VK [Concomitant]
     Indication: ANTIBIOTIC PROPHYLAXIS
     Dosage: 125 MG, BID
     Route: 048
     Dates: start: 20120423, end: 20120716

REACTIONS (7)
  - Neoplasm progression [Fatal]
  - Metastases to nervous system [Fatal]
  - Tumour haemorrhage [Fatal]
  - Neurological decompensation [Unknown]
  - Unresponsive to stimuli [Not Recovered/Not Resolved]
  - Dysphagia [Not Recovered/Not Resolved]
  - T-cell depletion [Recovering/Resolving]
